FAERS Safety Report 19853780 (Version 4)
Quarter: 2021Q4

REPORT INFORMATION
  Report Type: Report from Study
  Country: None (occurrence: US)
  Receive Date: 20210920
  Receipt Date: 20211019
  Transmission Date: 20220303
  Serious: Yes (Other)
  Sender: FDA-Public Use
  Company Number: US-ABBVIE-21K-163-4083022-00

PATIENT
  Age: 62 Year
  Sex: Female
  Weight: 102.15 kg

DRUGS (36)
  1. SKYRIZI [Suspect]
     Active Substance: RISANKIZUMAB-RZAA
     Indication: Psoriasis
     Route: 058
     Dates: start: 201904, end: 202103
  2. SKYRIZI [Suspect]
     Active Substance: RISANKIZUMAB-RZAA
     Route: 058
     Dates: start: 20210402
  3. DOXEPIN [Suspect]
     Active Substance: DOXEPIN
     Indication: Pruritus
     Route: 048
     Dates: start: 202104, end: 202104
  4. DOXEPIN [Suspect]
     Active Substance: DOXEPIN
     Route: 048
     Dates: start: 202106, end: 202106
  5. MODERNA COVID-19 VACCINE [Concomitant]
     Active Substance: CX-024414
     Indication: COVID-19 immunisation
     Route: 030
     Dates: start: 20210120, end: 20210120
  6. MODERNA COVID-19 VACCINE [Concomitant]
     Active Substance: CX-024414
     Route: 030
     Dates: start: 20210217, end: 20210217
  7. METOPROLOL [Concomitant]
     Active Substance: METOPROLOL
     Indication: Product used for unknown indication
  8. DESONIDE [Concomitant]
     Active Substance: DESONIDE
     Indication: Psoriasis
  9. TRIAMCINOLONE [Concomitant]
     Active Substance: TRIAMCINOLONE
     Indication: Dermatitis psoriasiform
  10. TRIAMCINOLONE [Concomitant]
     Active Substance: TRIAMCINOLONE
     Indication: Psoriasis
  11. KETOCONAZOLE [Concomitant]
     Active Substance: KETOCONAZOLE
     Indication: Psoriasis
  12. PIROCTONE OLAMINE\SALICYLIC ACID [Concomitant]
     Active Substance: PIROCTONE OLAMINE\SALICYLIC ACID
     Indication: Psoriasis
  13. T/SAL [Concomitant]
     Indication: Skin exfoliation
  14. T/SAL [Concomitant]
     Indication: Psoriasis
  15. HERPES SIMPLEX 1 VACCINE;HERPES SIMPLEX 2 VACCINE [Concomitant]
     Indication: Prophylaxis
     Dates: start: 2020, end: 2020
  16. INFLUENZA VIRUS VACCINE [Concomitant]
     Active Substance: INFLUENZA VIRUS VACCINE
     Indication: Prophylaxis
     Dates: start: 2021, end: 2021
  17. MELOXICAM [Concomitant]
     Active Substance: MELOXICAM
     Indication: Arthritis
  18. VITAMIN D [Concomitant]
     Active Substance: VITAMIN D NOS
     Indication: Supplementation therapy
  19. CETIRIZINE [Concomitant]
     Active Substance: CETIRIZINE HYDROCHLORIDE
     Indication: Hypersensitivity
  20. LORATADINE [Concomitant]
     Active Substance: LORATADINE
     Indication: Hypersensitivity
  21. ESTRADIOL [Concomitant]
     Active Substance: ESTRADIOL
     Indication: Hormone therapy
  22. ZYRTEC [Concomitant]
     Active Substance: CETIRIZINE HYDROCHLORIDE
     Indication: Hypersensitivity
  23. AMITRIPTYLINE [Concomitant]
     Active Substance: AMITRIPTYLINE
     Indication: Affective disorder
  24. DULOXETINE [Concomitant]
     Active Substance: DULOXETINE
     Indication: Depression
  25. SIMVASTATIN [Concomitant]
     Active Substance: SIMVASTATIN
     Indication: Blood cholesterol increased
  26. VITAMINS [Concomitant]
     Active Substance: VITAMINS
     Indication: Vitamin supplementation
  27. METFORMIN [Concomitant]
     Active Substance: METFORMIN HYDROCHLORIDE
     Indication: Diabetes mellitus
  28. KLOR-CON [Concomitant]
     Active Substance: POTASSIUM CHLORIDE
     Indication: Mineral supplementation
  29. VITAMIN B3 [Concomitant]
     Active Substance: NIACIN
     Indication: Supplementation therapy
  30. GABAPENTIN [Concomitant]
     Active Substance: GABAPENTIN
     Indication: Neuropathy peripheral
  31. ASPIRIN [Concomitant]
     Active Substance: ASPIRIN
     Indication: Product used for unknown indication
  32. STRESS B COMPLEX [Concomitant]
     Indication: Product used for unknown indication
  33. ALEVE [Concomitant]
     Active Substance: NAPROXEN SODIUM
     Indication: Pelvic pain
  34. ALEVE [Concomitant]
     Active Substance: NAPROXEN SODIUM
     Indication: Neck pain
  35. TYLENOL [Concomitant]
     Active Substance: ACETAMINOPHEN
     Indication: Pelvic pain
  36. TYLENOL [Concomitant]
     Active Substance: ACETAMINOPHEN
     Indication: Neck pain

REACTIONS (16)
  - Supraventricular tachycardia [Recovered/Resolved]
  - Supraventricular tachycardia [Recovered/Resolved]
  - Supraventricular tachycardia [Recovered/Resolved]
  - Supraventricular tachycardia [Recovered/Resolved]
  - Heart rate increased [Recovered/Resolved]
  - Heart rate increased [Recovered/Resolved]
  - Oedema [Recovered/Resolved]
  - Glycosylated haemoglobin increased [Not Recovered/Not Resolved]
  - Glycosylated haemoglobin increased [Not Recovered/Not Resolved]
  - Glycosylated haemoglobin increased [Not Recovered/Not Resolved]
  - Anxiety [Unknown]
  - Somnolence [Recovered/Resolved]
  - Insomnia [Recovered/Resolved]
  - Fall [Unknown]
  - Urticaria [Recovered/Resolved]
  - Fatigue [Recovering/Resolving]

NARRATIVE: CASE EVENT DATE: 20201101
